FAERS Safety Report 5355956-X (Version None)
Quarter: 2007Q2

REPORT INFORMATION
  Report Type: 
  Country: None (occurrence: None)
  Receive Date: 20070613
  Receipt Date: 20070601
  Transmission Date: 20071010
  Serious: Yes (Death, Hospitalization, Disabling)
  Sender: FDA-Public Use
  Company Number: JP-SANOFI-SYNTHELABO-A01200704396

PATIENT
  Sex: Male

DRUGS (8)
  1. MEROPEN [Concomitant]
     Indication: PNEUMONIA
     Route: 041
     Dates: start: 20070423, end: 20070427
  2. CIPROFLOXACIN [Concomitant]
     Indication: PNEUMONIA
     Route: 041
     Dates: start: 20070412, end: 20070423
  3. MAXIPIME [Concomitant]
     Indication: PNEUMONIA
     Route: 041
     Dates: start: 20070405, end: 20070412
  4. FLUOROURACIL [Suspect]
     Indication: COLON CANCER
     Dosage: 600MG/BODY IN BOLUS THEN 3750MG/BODY AS CONTINUOUS INFUSION ON DAY 1-2 UNK
     Route: 041
     Dates: start: 20070405, end: 20070405
  5. ORGADRONE [Concomitant]
     Indication: PREMEDICATION
     Route: 041
     Dates: start: 20060810, end: 20070405
  6. ISOVORIN [Suspect]
     Indication: COLON CANCER
     Route: 041
     Dates: start: 20070405, end: 20070405
  7. KYTRIL [Concomitant]
     Indication: PREMEDICATION
     Route: 041
     Dates: start: 20060810, end: 20070405
  8. OXALIPLATIN [Suspect]
     Indication: COLON CANCER
     Route: 041
     Dates: start: 20070405, end: 20070405

REACTIONS (5)
  - INTERSTITIAL LUNG DISEASE [None]
  - LEUKOPENIA [None]
  - NEUROPATHY PERIPHERAL [None]
  - NEUTROPENIA [None]
  - THROMBOCYTOPENIA [None]
